FAERS Safety Report 8351789-0 (Version None)
Quarter: 2012Q2

REPORT INFORMATION
  Report Type: 
  Country: None (occurrence: None)
  Receive Date: 20120511
  Receipt Date: 20120504
  Transmission Date: 20120825
  Serious: No
  Sender: FDA-Public Use
  Company Number: US-BIOGENIDEC-2012BI015996

PATIENT
  Age: 56 Year
  Sex: Female

DRUGS (1)
  1. TYSABRI [Suspect]
     Indication: MULTIPLE SCLEROSIS
     Route: 042
     Dates: start: 20100303

REACTIONS (5)
  - DARK CIRCLES UNDER EYES [None]
  - RASH [None]
  - EYE INFLAMMATION [None]
  - EYE SWELLING [None]
  - HORDEOLUM [None]
